FAERS Safety Report 4934712-8 (Version None)
Quarter: 2006Q1

REPORT INFORMATION
  Report Type: 
  Country: None (occurrence: None)
  Receive Date: 20060307
  Receipt Date: 20060224
  Transmission Date: 20060701
  Serious: Yes (Life-Threatening, Hospitalization)
  Sender: FDA-Public Use
  Company Number: GB-MERCK-0602GBR00145

PATIENT
  Age: 64 Year
  Sex: Male

DRUGS (9)
  1. MIDAMOR [Suspect]
     Route: 065
  2. LISINOPRIL [Suspect]
     Indication: NEPHROTIC SYNDROME
     Route: 048
  3. LISINOPRIL [Suspect]
     Route: 048
     Dates: end: 20060101
  4. SPIRONOLACTONE [Suspect]
     Route: 065
  5. FUROSEMIDE [Suspect]
     Route: 065
  6. ALLOPURINOL [Concomitant]
     Route: 065
  7. CETIRIZINE HYDROCHLORIDE [Concomitant]
     Route: 065
  8. ALBUTEROL [Concomitant]
     Route: 055
  9. CLOBETASOL PROPIONATE [Concomitant]
     Route: 061

REACTIONS (6)
  - BLOOD POTASSIUM INCREASED [None]
  - BLOOD UREA INCREASED [None]
  - DIARRHOEA [None]
  - HYPOTENSION [None]
  - RENAL FAILURE ACUTE [None]
  - VOMITING [None]
